FAERS Safety Report 5727772-8 (Version None)
Quarter: 2008Q2

REPORT INFORMATION
  Report Type: 
  Country: None (occurrence: None)
  Receive Date: 20080505
  Receipt Date: 20080423
  Transmission Date: 20081010
  Serious: Yes (Hospitalization)
  Sender: FDA-Public Use
  Company Number: DE-PFIZER INC-2008036659

PATIENT
  Sex: Female
  Weight: 77 kg

DRUGS (5)
  1. LYRICA [Suspect]
     Indication: RADICULOPATHY
     Route: 048
     Dates: start: 20080421, end: 20080423
  2. VALPROATE SODIUM [Concomitant]
  3. ALLOPURINOL [Concomitant]
  4. HYDROCHLOROTHIAZIDE [Concomitant]
  5. NOVALDIN INJ [Concomitant]

REACTIONS (5)
  - BLOOD PRESSURE INCREASED [None]
  - CONVULSION [None]
  - DEPRESSED LEVEL OF CONSCIOUSNESS [None]
  - DIZZINESS [None]
  - HEADACHE [None]
